FAERS Safety Report 8919258 (Version 5)
Quarter: 2014Q2

REPORT INFORMATION
  Report Type: Report from Study
  Country: US (occurrence: US)
  Receive Date: 20121121
  Receipt Date: 20140514
  Transmission Date: 20141212
  Serious: Yes (Hospitalization)
  Sender: FDA-Public Use
  Company Number: US-EISAI INC-E7389-03247-CLI-US

PATIENT
  Age: 75 Year
  Sex: Male
  Weight: 71 kg

DRUGS (7)
  1. ERIBULIN [Suspect]
     Indication: NON-SMALL CELL LUNG CANCER
     Dosage: 1.4 MG/M2 (2.5 MG)
     Route: 041
     Dates: start: 20121004, end: 20121213
  2. LISINOPRIL [Concomitant]
     Indication: HYPERTENSION
     Route: 048
     Dates: start: 20000414
  3. DILTIAZEM [Concomitant]
     Indication: HYPERTENSION
     Dates: start: 20000414
  4. METFORMIN HYDROCHLORIDE [Concomitant]
     Indication: DIABETES MELLITUS
     Route: 048
     Dates: start: 20040719
  5. SIMVASTATIN [Concomitant]
     Indication: HYPERCHOLESTEROLAEMIA
     Route: 048
     Dates: start: 20020612
  6. HYDROCHLOROTHIAZIDE [Concomitant]
     Indication: HYPERTENSION
     Route: 048
     Dates: start: 20000414
  7. PROPRANOLOL HCL [Concomitant]
     Indication: ESSENTIAL TREMOR
     Route: 048
     Dates: start: 20050804

REACTIONS (1)
  - Jugular vein thrombosis [Recovered/Resolved]
